FAERS Safety Report 24059048 (Version 1)
Quarter: 2024Q3

REPORT INFORMATION
  Report Type: Spontaneous
  Country: US (occurrence: US)
  Receive Date: 20240708
  Receipt Date: 20240708
  Transmission Date: 20241017
  Serious: No
  Sender: GLAXOSMITHKLINE
  Company Number: US-GSKCCFUS-Case-02044940_AE-113309

PATIENT
  Age: 68 Year
  Sex: Male

DRUGS (2)
  1. ARNUITY ELLIPTA [Suspect]
     Active Substance: FLUTICASONE FUROATE
     Indication: Asthma
     Dosage: UNK
     Route: 055
     Dates: start: 20240627
  2. TRELEGY ELLIPTA [Suspect]
     Active Substance: FLUTICASONE FUROATE\UMECLIDINIUM BROMIDE\VILANTEROL TRIFENATATE
     Indication: Asthma
     Dosage: UNK, 200/62.5/25 MCG
     Route: 055

REACTIONS (9)
  - Rash [Recovering/Resolving]
  - Candida infection [Unknown]
  - Bronchial disorder [Unknown]
  - Dyspnoea [Unknown]
  - Erythema [Unknown]
  - Feeling hot [Unknown]
  - Swelling [Unknown]
  - Drug ineffective [Unknown]
  - Wrong technique in device usage process [Unknown]

NARRATIVE: CASE EVENT DATE: 20240501
